FAERS Safety Report 9905562 (Version 1)
Quarter: 2014Q1

REPORT INFORMATION
  Report Type: Spontaneous
  Country: FR (occurrence: FR)
  Receive Date: 20140218
  Receipt Date: 20140218
  Transmission Date: 20141002
  Serious: Yes (Hospitalization)
  Sender: FDA-Public Use
  Company Number: FR-GLAXOSMITHKLINE-B0967717A

PATIENT
  Age: 64 Year
  Sex: Female

DRUGS (5)
  1. ZOPHREN [Suspect]
     Indication: PREMEDICATION
     Dosage: 8MG CYCLIC
     Route: 042
     Dates: start: 20130904, end: 20131220
  2. MYOCET [Suspect]
     Indication: BREAST CANCER METASTATIC
     Dosage: 132.75MG CYCLIC
     Route: 042
     Dates: start: 20130904, end: 20131220
  3. ENDOXAN [Suspect]
     Indication: BREAST CANCER METASTATIC
     Dosage: 1062MG CYCLIC
     Route: 042
     Dates: start: 20130904, end: 20131220
  4. SOLUMEDROL [Suspect]
     Indication: PREMEDICATION
     Dosage: 60MG CYCLIC
     Route: 042
     Dates: start: 20130904, end: 20131220
  5. LYTOS [Suspect]
     Indication: PRODUCT USED FOR UNKNOWN INDICATION
     Route: 048
     Dates: start: 20130904

REACTIONS (1)
  - Ejection fraction decreased [Not Recovered/Not Resolved]
